FAERS Safety Report 14630025 (Version 1)
Quarter: 2018Q1

REPORT INFORMATION
  Report Type: Spontaneous
  Country: US (occurrence: US)
  Receive Date: 20180313
  Receipt Date: 20180313
  Transmission Date: 20180509
  Serious: No
  Sender: FDA-Public Use
  Company Number: US-PFIZER INC-2018089807

PATIENT
  Age: 70 Year
  Sex: Female
  Weight: 67.12 kg

DRUGS (8)
  1. XELJANZ [Suspect]
     Active Substance: TOFACITINIB CITRATE
     Indication: PAIN
  2. PREDNISONE. [Concomitant]
     Active Substance: PREDNISONE
     Indication: INFLAMMATION
     Dosage: 5 MG, 2X/DAY
     Route: 048
  3. ADVIL LIQUI GELS [Concomitant]
     Indication: INFLAMMATION
  4. PREDNISONE. [Concomitant]
     Active Substance: PREDNISONE
     Indication: PAIN
  5. ADVIL LIQUI GELS [Concomitant]
     Indication: SWELLING
     Dosage: 200 MG, UNK (SOMETIMES TAKE TWO)
     Route: 048
  6. XELJANZ [Suspect]
     Active Substance: TOFACITINIB CITRATE
     Indication: SWELLING
     Dosage: 10 MG, UNK (THE TWO PILLS 5MG EACH FOR SEVERAL YEARS)
  7. ADVIL LIQUI GELS [Concomitant]
     Indication: PAIN
  8. XELJANZ [Suspect]
     Active Substance: TOFACITINIB CITRATE
     Indication: RHEUMATOID ARTHRITIS

REACTIONS (2)
  - Intentional product misuse [Unknown]
  - Hypertension [Recovering/Resolving]

NARRATIVE: CASE EVENT DATE: 2017
